FAERS Safety Report 8115847-8 (Version None)
Quarter: 2012Q1

REPORT INFORMATION
  Report Type: 
  Country: None (occurrence: None)
  Receive Date: 20120206
  Receipt Date: 20120127
  Transmission Date: 20120608
  Serious: Yes (Death)
  Sender: FDA-Public Use
  Company Number: NL-ROCHE-1034151

PATIENT
  Sex: Female
  Weight: 60 kg

DRUGS (6)
  1. ACTEMRA [Suspect]
     Route: 042
     Dates: start: 20100715
  2. ACTEMRA [Suspect]
     Indication: RHEUMATOID ARTHRITIS
     Dosage: DOSE: 8MG/KG
     Route: 042
     Dates: start: 20090804
  3. ACTEMRA [Suspect]
     Route: 042
     Dates: start: 20101014
  4. METHOTREXATE [Concomitant]
     Route: 058
  5. ACTEMRA [Suspect]
     Route: 042
     Dates: start: 20100908
  6. ACTEMRA [Suspect]
     Route: 042
     Dates: start: 20100819

REACTIONS (1)
  - COLON CANCER METASTATIC [None]
